FAERS Safety Report 23692559 (Version 2)
Quarter: 2024Q2

REPORT INFORMATION
  Report Type: Spontaneous
  Country: US (occurrence: US)
  Receive Date: 20240401
  Receipt Date: 20240520
  Transmission Date: 20240716
  Serious: Yes (Hospitalization)
  Sender: FDA-Public Use
  Company Number: US-PFIZER INC-PV202400041366

PATIENT
  Age: 46 Year
  Sex: Female

DRUGS (2)
  1. RETACRIT [Suspect]
     Active Substance: EPOETIN ALFA-EPBX
     Indication: Lung neoplasm
     Dosage: SINGLE-DOSE VIAL (1 ML)
  2. RETACRIT [Suspect]
     Active Substance: EPOETIN ALFA-EPBX
     Indication: Metastases to liver

REACTIONS (4)
  - Seizure [Unknown]
  - Facial paralysis [Unknown]
  - Aphasia [Unknown]
  - Off label use [Unknown]
